FAERS Safety Report 7067650-8 (Version None)
Quarter: 2010Q4

REPORT INFORMATION
  Report Type: 
  Country: None (occurrence: None)
  Receive Date: 20101020
  Receipt Date: 20101007
  Transmission Date: 20110411
  Serious: Yes (Other)
  Sender: FDA-Public Use
  Company Number: US-1183645

PATIENT
  Sex: Female
  Weight: 68.0396 kg

DRUGS (5)
  1. TIMOLOL MALEATE [Suspect]
     Indication: GLAUCOMA
     Dosage: (1 GTT QD OU OPHTHALMIC)
     Route: 047
     Dates: start: 20100101
  2. TRAVATAN Z [Concomitant]
  3. VALIUM [Concomitant]
  4. INDERAL [Concomitant]
  5. COLCHICINE [Concomitant]

REACTIONS (3)
  - ALOPECIA [None]
  - DEAFNESS [None]
  - PRURITUS [None]
